FAERS Safety Report 7449632-7 (Version None)
Quarter: 2011Q1

REPORT INFORMATION
  Report Type: 
  Country: None (occurrence: None)
  Receive Date: 20110302
  Receipt Date: 20101130
  Transmission Date: 20110831
  Serious: No
  Sender: FDA-Public Use
  Company Number: 022001

PATIENT
  Sex: Female
  Weight: 75.3 kg

DRUGS (5)
  1. MELPHALAN HYDROCHLORIDE [Concomitant]
  2. PLAQUENIL [Concomitant]
  3. TRAMADOL HYDROCHLORIDE [Concomitant]
  4. CIMZIA [Suspect]
     Indication: RHEUMATOID ARTHRITIS
     Dosage: 400 MG 1X/2 WEEKS SUBCUTANEOUS
     Route: 058
     Dates: start: 20101027, end: 20101112
  5. PREVACID [Concomitant]

REACTIONS (1)
  - HYPERSENSITIVITY [None]
